FAERS Safety Report 7640801-X (Version None)
Quarter: 2011Q3

REPORT INFORMATION
  Report Type: 
  Country: None (occurrence: None)
  Receive Date: 20110728
  Receipt Date: 20110412
  Transmission Date: 20111222
  Serious: No
  Sender: FDA-Public Use
  Company Number: US-MUTUAL PHARMACEUTICAL COMPANY, INC.-CLCY20110045

PATIENT
  Sex: 0

DRUGS (2)
  1. COLCHICINE [Suspect]
     Indication: FAMILIAL MEDITERRANEAN FEVER
     Route: 065
  2. COLCRYS [Suspect]
     Indication: FAMILIAL MEDITERRANEAN FEVER
     Route: 065

REACTIONS (5)
  - ABDOMINAL PAIN UPPER [None]
  - MALAISE [None]
  - GASTROINTESTINAL PAIN [None]
  - DRUG EFFECT DECREASED [None]
  - NAUSEA [None]
